FAERS Safety Report 12317101 (Version 1)
Quarter: 2016Q2

REPORT INFORMATION
  Report Type: Spontaneous
  Country: US (occurrence: US)
  Receive Date: 20160429
  Receipt Date: 20160429
  Transmission Date: 20160815
  Serious: Yes (Other)
  Sender: FDA-Public Use
  Company Number: US-BRISTOL-MYERS SQUIBB COMPANY-BMS-2016-031215

PATIENT
  Sex: Male
  Weight: 70.76 kg

DRUGS (2)
  1. NULOJIX [Suspect]
     Active Substance: BELATACEPT
     Indication: RENAL TRANSPLANT
     Dosage: 5 MG/KG, Q2WK
     Route: 065
  2. NULOJIX [Suspect]
     Active Substance: BELATACEPT
     Dosage: UNK, QMO
     Route: 065

REACTIONS (1)
  - BK virus infection [Unknown]
